FAERS Safety Report 8819730 (Version 1)
Quarter: 2012Q4

REPORT INFORMATION
  Report Type: 
  Country: SG (occurrence: SG)
  Receive Date: 20121001
  Receipt Date: 20121001
  Transmission Date: 20130627
  Serious: Yes (Other)
  Sender: FDA-Public Use
  Company Number: SG-ABBOTT-12P-141-0964026-00

PATIENT
  Age: 67 Year
  Sex: Female

DRUGS (1)
  1. FENOFIBRATE [Suspect]

REACTIONS (1)
  - Chest discomfort [Unknown]
